FAERS Safety Report 26170332 (Version 1)
Quarter: 2025Q4

REPORT INFORMATION
  Report Type: Spontaneous
  Country: US (occurrence: US)
  Receive Date: 20251217
  Receipt Date: 20251217
  Transmission Date: 20260118
  Serious: No
  Sender: ARDELYX
  Company Number: US-ARDELYX-2025ARDX008499

PATIENT
  Age: 65 Year
  Sex: Male

DRUGS (3)
  1. XPHOZAH [Suspect]
     Active Substance: TENAPANOR HYDROCHLORIDE
     Indication: Hyperphosphataemia
     Dosage: UNK
     Route: 065
     Dates: start: 20250811, end: 2025
  2. XPHOZAH [Suspect]
     Active Substance: TENAPANOR HYDROCHLORIDE
     Indication: Chronic kidney disease
     Dosage: UNK, NOT TAKING IT ON DIALYSIS DAYS
     Route: 065
     Dates: start: 20250915, end: 2025
  3. XPHOZAH [Suspect]
     Active Substance: TENAPANOR HYDROCHLORIDE
     Dosage: 20 MG, BID
     Route: 048
     Dates: start: 20251003, end: 20251112

REACTIONS (1)
  - Diarrhoea [Recovered/Resolved]

NARRATIVE: CASE EVENT DATE: 20250917
